FAERS Safety Report 17135132 (Version 11)
Quarter: 2023Q4

REPORT INFORMATION
  Report Type: Spontaneous
  Country: US (occurrence: US)
  Receive Date: 20191210
  Receipt Date: 20231201
  Transmission Date: 20240110
  Serious: Yes (Death, Other)
  Sender: FDA-Public Use
  Company Number: US-PFIZER INC-2019489075

PATIENT
  Age: 75 Year
  Sex: Female

DRUGS (2)
  1. IBRANCE [Suspect]
     Active Substance: PALBOCICLIB
     Indication: Breast cancer female
     Dosage: DAILY 28 DAY SUPPLY
     Route: 048
  2. IBRANCE [Suspect]
     Active Substance: PALBOCICLIB
     Dosage: DAILY FOR D1-21, Q 4 WEEKS
     Route: 048

REACTIONS (7)
  - Death [Fatal]
  - Myelosuppression [Unknown]
  - Pancytopenia [Unknown]
  - Spinal stenosis [Unknown]
  - Neoplasm progression [Unknown]
  - Nasopharyngitis [Unknown]
  - Walking disability [Unknown]

NARRATIVE: CASE EVENT DATE: 20220801
